FAERS Safety Report 8346016-4 (Version None)
Quarter: 2012Q2

REPORT INFORMATION
  Report Type: 
  Country: None (occurrence: None)
  Receive Date: 20120509
  Receipt Date: 20120507
  Transmission Date: 20120825
  Serious: Yes (Other)
  Sender: FDA-Public Use
  Company Number: US-PFIZER INC-2012111611

PATIENT
  Sex: Female
  Weight: 64.399 kg

DRUGS (5)
  1. CHANTIX [Suspect]
     Indication: SMOKING CESSATION THERAPY
     Dosage: 0.5 MG, 1X/DAY
     Route: 048
     Dates: start: 20110601, end: 20110601
  2. CHANTIX [Suspect]
     Dosage: UNK
     Dates: start: 20120501
  3. LORTAB [Concomitant]
     Indication: PAIN
     Dosage: UNK
  4. KLONOPIN [Concomitant]
     Dosage: UNK
  5. CHANTIX [Suspect]
     Dosage: 1 MG, 2X/DAY
     Route: 048
     Dates: start: 20110601, end: 20110701

REACTIONS (4)
  - SUICIDAL IDEATION [None]
  - MOOD ALTERED [None]
  - IRRITABILITY [None]
  - CRYING [None]
